FAERS Safety Report 4308705-8 (Version None)
Quarter: 2004Q1

REPORT INFORMATION
  Report Type: 
  Country: None (occurrence: None)
  Receive Date: 20040227
  Receipt Date: 20040223
  Transmission Date: 20041129
  Serious: Yes (Death)
  Sender: FDA-Public Use
  Company Number: USA-2004-0013294

PATIENT
  Age: 34 Year
  Sex: Female

DRUGS (6)
  1. OXYCODONE HCL [Suspect]
     Indication: CANCER PAIN
  2. HYDROCODONE BITARTRATE [Suspect]
     Indication: CANCER PAIN
  3. DIHYDROCODEINE (DIHYDROCODEINE) [Suspect]
  4. IBUPROFEN [Suspect]
  5. ACETAMINOPHEN [Suspect]
  6. CAFFEINE (CAFFEINE) [Suspect]

REACTIONS (5)
  - CERVIX CANCER METASTATIC [None]
  - CONDITION AGGRAVATED [None]
  - HEPATIC PAIN [None]
  - METASTASES TO LIVER [None]
  - METASTASES TO LYMPH NODES [None]
